FAERS Safety Report 4881778-X (Version None)
Quarter: 2006Q1

REPORT INFORMATION
  Report Type: 
  Country: None (occurrence: None)
  Receive Date: 20060117
  Receipt Date: 20060103
  Transmission Date: 20060701
  Serious: Yes (Hospitalization)
  Sender: FDA-Public Use
  Company Number: FR-SOLVAY-00206000131

PATIENT
  Age: 54 Year
  Sex: Male
  Weight: 78 kg

DRUGS (13)
  1. HUMULINE NPH [Concomitant]
     Indication: ILL-DEFINED DISORDER
     Dosage: DAILY DOSE:  UNKNOWN
     Route: 058
  2. COVERSYL [Suspect]
     Indication: ILL-DEFINED DISORDER
     Dosage: DAILY DOSE: 1 DOSAGE FORM
     Route: 048
  3. ZYLORIC [Concomitant]
     Indication: ILL-DEFINED DISORDER
     Dosage: DAILY DOSE:  UNKNOWN
     Route: 048
  4. NORVIR [Suspect]
     Indication: ILL-DEFINED DISORDER
     Dosage: DAILY DOSE: 1 DOSAGE FORM
     Route: 048
     Dates: start: 20050615
  5. KARDEGIC [Concomitant]
     Indication: ILL-DEFINED DISORDER
     Dosage: DAILY DOSE:  UNKNOWN
     Route: 048
  6. EPIVIR [Suspect]
     Indication: ILL-DEFINED DISORDER
     Dosage: DAILY DOSE: 150 MILLIGRAM(S)
     Route: 048
     Dates: start: 20050615
  7. LASILIX [Concomitant]
     Indication: ILL-DEFINED DISORDER
     Dosage: DAILY DOSE:  UNKNOWN
     Route: 065
  8. ZIAGEN [Suspect]
     Indication: ILL-DEFINED DISORDER
     Dosage: DAILY DOSE:  UNKNOWN
     Route: 048
     Dates: start: 20050615
  9. OGAST [Concomitant]
     Indication: ILL-DEFINED DISORDER
     Dosage: DAILY DOSE:  UNKNOWN
     Route: 048
  10. REYATAZ [Suspect]
     Indication: ILL-DEFINED DISORDER
     Dosage: DAILY DOSE: 300 MILLIGRAM(S)
     Route: 048
     Dates: start: 20050615
  11. ZOLPIDEM TARTRATE [Concomitant]
     Indication: ILL-DEFINED DISORDER
     Dosage: DAILY DOSE:  UNKNOWN
     Route: 048
  12. PREVISCAN [Suspect]
     Indication: ILL-DEFINED DISORDER
     Dosage: DAILY DOSE:  UNKNOWN
     Route: 048
     Dates: start: 20050615
  13. KAYEXALATE [Concomitant]
     Indication: ILL-DEFINED DISORDER
     Dosage: DAILY DOSE:  UNKNOWN
     Route: 048

REACTIONS (2)
  - RETINAL HAEMORRHAGE [None]
  - XEROSIS [None]
